FAERS Safety Report 8579625-8 (Version None)
Quarter: 2012Q3

REPORT INFORMATION
  Report Type: 
  Country: None (occurrence: None)
  Receive Date: 20120731
  Receipt Date: 20120731
  Transmission Date: 20120928
  Serious: No
  Sender: FDA-Public Use
  Company Number: None

PATIENT
  Sex: Female

DRUGS (1)
  1. VALTREX [Suspect]
     Indication: GENITAL HERPES
     Dosage: VALTREX 1 BID

REACTIONS (2)
  - DRUG EFFECT DELAYED [None]
  - PRODUCT SUBSTITUTION ISSUE [None]
